FAERS Safety Report 19754707 (Version 1)
Quarter: 2021Q3

REPORT INFORMATION
  Report Type: Spontaneous
  Country: US (occurrence: US)
  Receive Date: 20210827
  Receipt Date: 20210827
  Transmission Date: 20211014
  Serious: No
  Sender: FDA-Public Use
  Company Number: None

PATIENT
  Age: 76 Year
  Sex: Male
  Weight: 92.7 kg

DRUGS (1)
  1. TAMSULOSIN HCL [Suspect]
     Active Substance: TAMSULOSIN HYDROCHLORIDE
     Indication: KIDNEY INFECTION
     Dosage: ?          QUANTITY:1 CAPSULE(S);?
     Route: 048
     Dates: start: 20210802, end: 20210812

REACTIONS (8)
  - Influenza like illness [None]
  - Skin odour abnormal [None]
  - Headache [None]
  - Arthralgia [None]
  - Sinus congestion [None]
  - Lethargy [None]
  - Nightmare [None]
  - Incontinence [None]

NARRATIVE: CASE EVENT DATE: 20210802
